FAERS Safety Report 8902734 (Version 1)
Quarter: 2012Q4

REPORT INFORMATION
  Report Type: 
  Country: US (occurrence: US)
  Receive Date: 20121112
  Receipt Date: 20121112
  Transmission Date: 20130627
  Serious: No
  Sender: FDA-Public Use
  Company Number: US-PFIZER INC-2012278684

PATIENT
  Age: 39 Year
  Sex: Female
  Weight: 63.49 kg

DRUGS (1)
  1. RAPAMUNE [Suspect]
     Indication: LUNG DISORDER
     Dosage: 2 mg, daily
     Dates: start: 2011

REACTIONS (3)
  - Headache [Recovered/Resolved]
  - Sinusitis [Recovered/Resolved]
  - Off label use [Unknown]
